FAERS Safety Report 5702955-1 (Version None)
Quarter: 2008Q2

REPORT INFORMATION
  Report Type: 
  Country: None (occurrence: None)
  Receive Date: 20080411
  Receipt Date: 20080403
  Transmission Date: 20081010
  Serious: Yes (Other)
  Sender: FDA-Public Use
  Company Number: US-GILEAD-2008-0015335

PATIENT
  Sex: Male
  Weight: 77.18 kg

DRUGS (7)
  1. LETAIRIS [Suspect]
     Indication: PULMONARY HYPERTENSION
     Route: 048
     Dates: start: 20071010, end: 20080206
  2. FOLIC ACID [Concomitant]
     Route: 048
  3. LOTREL [Concomitant]
     Dosage: AMLODIPINE/BENAZEPRIL 5/20MG
     Route: 048
  4. TOPROL-XL [Concomitant]
     Route: 048
  5. LASIX [Concomitant]
  6. HYDROXYUREA [Concomitant]
     Dates: start: 20071201
  7. HYDROXYUREA [Concomitant]

REACTIONS (3)
  - ASCITES [None]
  - LIVER FUNCTION TEST ABNORMAL [None]
  - OEDEMA [None]
